FAERS Safety Report 5591621-1 (Version None)
Quarter: 2008Q1

REPORT INFORMATION
  Report Type: 
  Country: None (occurrence: None)
  Receive Date: 20080115
  Receipt Date: 20080109
  Transmission Date: 20080703
  Serious: Yes (Hospitalization)
  Sender: FDA-Public Use
  Company Number: GB-ROCHE-513672

PATIENT
  Age: 69 Year
  Sex: Male

DRUGS (4)
  1. XELODA [Suspect]
     Indication: RECTAL CANCER METASTATIC
     Route: 048
     Dates: start: 20070625
  2. XELODA [Suspect]
     Route: 048
  3. ELOXATIN [Suspect]
     Route: 042
     Dates: start: 20070625
  4. ELOXATIN [Suspect]
     Route: 042
     Dates: start: 20070920, end: 20071004

REACTIONS (4)
  - ABDOMINAL PAIN [None]
  - DIARRHOEA [None]
  - PERIPHERAL ISCHAEMIA [None]
  - VOMITING [None]
